FAERS Safety Report 5123356-3 (Version None)
Quarter: 2006Q4

REPORT INFORMATION
  Report Type: 
  Country: None (occurrence: None)
  Receive Date: 20061005
  Receipt Date: 20060927
  Transmission Date: 20070319
  Serious: Yes (Hospitalization)
  Sender: FDA-Public Use
  Company Number: BR-2006-023577

PATIENT
  Age: 31 Year
  Sex: Female

DRUGS (2)
  1. MIRENA [Suspect]
     Indication: ENDOMETRIOSIS
     Dosage: 20 UG/DAY, CONT, INTRA-UTERINE
     Route: 015
     Dates: start: 20051222, end: 20060614
  2. FERRO ^ANGELINI^ (FERRIC PYROPHOSPHATE) [Concomitant]

REACTIONS (12)
  - ANAEMIA POSTOPERATIVE [None]
  - CONDITION AGGRAVATED [None]
  - CYST RUPTURE [None]
  - DYSMENORRHOEA [None]
  - ENDOMETRIOSIS [None]
  - GENITAL HAEMORRHAGE [None]
  - HAEMORRHAGIC CYST [None]
  - OVARIAN CYST RUPTURED [None]
  - PELVIC PAIN [None]
  - POST PROCEDURAL HAEMORRHAGE [None]
  - PROCEDURAL PAIN [None]
  - UTERINE ENLARGEMENT [None]
